FAERS Safety Report 24994672 (Version 1)
Quarter: 2025Q1

REPORT INFORMATION
  Report Type: Spontaneous
  Country: FR (occurrence: FR)
  Receive Date: 20250221
  Receipt Date: 20250221
  Transmission Date: 20250408
  Serious: Yes (Hospitalization)
  Sender: GRIFOLS
  Company Number: None

PATIENT
  Age: 72 Year
  Sex: Male
  Weight: 88 kg

DRUGS (2)
  1. GAMUNEX [Suspect]
     Active Substance: HUMAN IMMUNOGLOBULIN G
     Indication: Multifocal motor neuropathy
     Route: 042
     Dates: start: 20250130, end: 20250130
  2. GAMUNEX [Suspect]
     Active Substance: HUMAN IMMUNOGLOBULIN G
     Route: 042
     Dates: start: 20250130, end: 20250130

REACTIONS (1)
  - Partial seizures [Recovered/Resolved]

NARRATIVE: CASE EVENT DATE: 20250130
